FAERS Safety Report 7743160-7 (Version None)
Quarter: 2011Q3

REPORT INFORMATION
  Report Type: 
  Country: None (occurrence: None)
  Receive Date: 20110912
  Receipt Date: 20110901
  Transmission Date: 20111222
  Serious: Yes (Hospitalization)
  Sender: FDA-Public Use
  Company Number: DE-CELGENEUS-062-C5013-11072792

PATIENT
  Age: 62 Year
  Sex: Male
  Weight: 88 kg

DRUGS (2)
  1. LENALIDOMIDE [Suspect]
     Route: 048
     Dates: start: 20110719, end: 20110725
  2. LENALIDOMIDE [Suspect]
     Route: 048
     Dates: start: 20110509

REACTIONS (1)
  - AGRANULOCYTOSIS [None]
